FAERS Safety Report 8308510-1 (Version None)
Quarter: 2012Q2

REPORT INFORMATION
  Report Type: 
  Country: None (occurrence: None)
  Receive Date: 20120424
  Receipt Date: 20120416
  Transmission Date: 20120825
  Serious: Yes (Hospitalization)
  Sender: FDA-Public Use
  Company Number: US-ABBOTT-12P-163-0912824-00

PATIENT
  Sex: Female

DRUGS (2)
  1. HUMIRA [Suspect]
     Indication: PSORIASIS
     Dates: start: 20100501, end: 20110524
  2. PREDNISOLONE [Suspect]
     Indication: BRONCHITIS

REACTIONS (7)
  - GLAUCOMA [None]
  - ORGANISING PNEUMONIA [None]
  - SQUAMOUS CELL CARCINOMA OF SKIN [None]
  - BRONCHIOLITIS [None]
  - RASH PAPULAR [None]
  - ALOPECIA [None]
  - DIABETES MELLITUS [None]
